FAERS Safety Report 20580033 (Version 1)
Quarter: 2022Q1

REPORT INFORMATION
  Report Type: Other
  Country: ES (occurrence: ES)
  Receive Date: 20220310
  Receipt Date: 20220310
  Transmission Date: 20220424
  Serious: Yes (Other)
  Sender: FDA-Public Use
  Company Number: ES-BoehringerIngelheim-2022-BI-154844

PATIENT

DRUGS (1)
  1. ALTEPLASE [Suspect]
     Active Substance: ALTEPLASE
     Indication: Ischaemic stroke
     Dosage: (MAXIMUM DOSE, 22.5 MG) INFUSED OVER 30 MINUTES (AT TRIAL ONSET) OR OVER 15 MINUTES
     Route: 013

REACTIONS (1)
  - Hypotension [Unknown]
